FAERS Safety Report 6833899-X (Version None)
Quarter: 2010Q3

REPORT INFORMATION
  Report Type: 
  Country: None (occurrence: None)
  Receive Date: 20100712
  Receipt Date: 20070403
  Transmission Date: 20110219
  Serious: Yes (Other)
  Sender: FDA-Public Use
  Company Number: US-PFIZER INC-2007028240

PATIENT
  Sex: Female
  Weight: 50.8 kg

DRUGS (3)
  1. CHANTIX [Suspect]
     Indication: SMOKING CESSATION THERAPY
     Dosage: DAILY
     Dates: start: 20070101, end: 20070301
  2. PREVACID [Concomitant]
  3. PREMPRO [Concomitant]

REACTIONS (1)
  - WEIGHT INCREASED [None]
